FAERS Safety Report 7157744-0 (Version None)
Quarter: 2010Q4

REPORT INFORMATION
  Report Type: 
  Country: None (occurrence: None)
  Receive Date: 20101214
  Receipt Date: 20100203
  Transmission Date: 20110411
  Serious: No
  Sender: FDA-Public Use
  Company Number: US-ASTRAZENECA-2010SE04825

PATIENT
  Age: 85 Year
  Sex: Female
  Weight: 39.9 kg

DRUGS (3)
  1. CRESTOR [Suspect]
     Route: 048
     Dates: start: 20100129
  2. DILTIAZEM [Concomitant]
     Indication: HYPERTENSION
  3. ASPIRIN [Concomitant]

REACTIONS (1)
  - BRONCHIECTASIS [None]
